FAERS Safety Report 21205375 (Version 2)
Quarter: 2022Q4

REPORT INFORMATION
  Report Type: Report from Study
  Country: US (occurrence: None)
  Receive Date: 20220812
  Receipt Date: 20221108
  Transmission Date: 20230113
  Serious: Yes (Hospitalization)
  Sender: FDA-Public Use
  Company Number: US-ROCHE-3141438

PATIENT
  Age: 76 Year
  Sex: Female
  Weight: 80.6 kg

DRUGS (4)
  1. ATEZOLIZUMAB [Suspect]
     Active Substance: ATEZOLIZUMAB
     Indication: Colon cancer stage III
     Dosage: MOST RECENT DOSE WAS ON 22/JUN/2022
     Route: 042
     Dates: start: 20220622
  2. FLUOROURACIL [Suspect]
     Active Substance: FLUOROURACIL
     Indication: Colon cancer stage III
     Dosage: MOST RECENT DOSE WAS ON 22/JUN/2022
     Route: 065
     Dates: start: 20220622
  3. LEUCOVORIN [Suspect]
     Active Substance: LEUCOVORIN
     Indication: Colon cancer stage III
     Dosage: MOST RECENT DOSE WAS ON 22/JUN/2022
     Route: 065
     Dates: start: 20220622
  4. OXALIPLATIN [Suspect]
     Active Substance: OXALIPLATIN
     Indication: Colon cancer stage III
     Dosage: MOST RECENT DOSE WAS ON 22/JUN/2022
     Route: 065
     Dates: start: 20220622

REACTIONS (3)
  - Hypokalaemia [Recovering/Resolving]
  - Colitis [Unknown]
  - Enterocolitis infectious [Unknown]

NARRATIVE: CASE EVENT DATE: 20220704
